FAERS Safety Report 16949047 (Version 1)
Quarter: 2019Q4

REPORT INFORMATION
  Report Type: Spontaneous
  Country: US (occurrence: US)
  Receive Date: 20191023
  Receipt Date: 20191023
  Transmission Date: 20200122
  Serious: No
  Sender: FDA-Public Use
  Company Number: US-ELI_LILLY_AND_COMPANY-US201910000361

PATIENT
  Sex: Male

DRUGS (4)
  1. HUMULIN 70/30 [Suspect]
     Active Substance: INSULIN HUMAN
     Dosage: 15 U, EACH EVENING
     Route: 058
     Dates: start: 2015
  2. HUMULIN 70/30 [Suspect]
     Active Substance: INSULIN HUMAN
     Dosage: 30 U, EACH MORNING
     Route: 058
  3. HUMULIN 70/30 [Suspect]
     Active Substance: INSULIN HUMAN
     Dosage: 15 U, EACH EVENING
     Route: 058
  4. HUMULIN 70/30 [Suspect]
     Active Substance: INSULIN HUMAN
     Indication: TYPE 2 DIABETES MELLITUS
     Dosage: 30 U, EACH MORNING
     Route: 058
     Dates: start: 2015

REACTIONS (3)
  - Blood glucose increased [Unknown]
  - Visual impairment [Unknown]
  - Accidental underdose [Unknown]
